FAERS Safety Report 7044669-4 (Version None)
Quarter: 2010Q4

REPORT INFORMATION
  Report Type: 
  Country: None (occurrence: None)
  Receive Date: 20101013
  Receipt Date: 20101013
  Transmission Date: 20110411
  Serious: Yes (Other)
  Sender: FDA-Public Use
  Company Number: None

PATIENT
  Age: 47 Year
  Sex: Female

DRUGS (2)
  1. OCTREOTIDE ACETATE [Suspect]
     Dosage: 75 MCG BID SQ
     Route: 058
     Dates: start: 20100924, end: 20100927
  2. OCTREOTIDE ACETATE [Suspect]

REACTIONS (2)
  - PRODUCT SUBSTITUTION ISSUE [None]
  - VOMITING [None]
